FAERS Safety Report 16288634 (Version 1)
Quarter: 2019Q2

REPORT INFORMATION
  Report Type: Spontaneous
  Country: US (occurrence: US)
  Receive Date: 20190509
  Receipt Date: 20190509
  Transmission Date: 20190711
  Serious: Yes (Life-Threatening, Hospitalization)
  Sender: FDA-Public Use
  Company Number: US-SUN PHARMACEUTICAL INDUSTRIES LTD-2019R1-207353

PATIENT
  Age: 31 Year
  Sex: Male

DRUGS (1)
  1. LOPERAMIDE [Suspect]
     Active Substance: LOPERAMIDE
     Indication: PRODUCT USED FOR UNKNOWN INDICATION
     Dosage: 280 MILLIGRAM, DAILY
     Route: 065

REACTIONS (6)
  - Torsade de pointes [Recovered/Resolved]
  - Electrocardiogram QT prolonged [Unknown]
  - Ventricular tachycardia [Unknown]
  - Overdose [Unknown]
  - Drug abuse [Unknown]
  - Seizure [Unknown]
